FAERS Safety Report 14069194 (Version 1)
Quarter: 2017Q4

REPORT INFORMATION
  Report Type: Spontaneous
  Country: US (occurrence: US)
  Receive Date: 20171010
  Receipt Date: 20171010
  Transmission Date: 20180321
  Serious: No
  Sender: FDA-Public Use
  Company Number: US-TEVA-812694USA

PATIENT
  Age: 68 Year
  Sex: Female
  Weight: 54.48 kg

DRUGS (11)
  1. VITAMIN D [Concomitant]
     Active Substance: CHOLECALCIFEROL
  2. SYNRIBO [Suspect]
     Active Substance: OMACETAXINE MEPESUCCINATE
     Indication: CHRONIC MYELOID LEUKAEMIA
     Dosage: 1 INJECTION TWICE A DAY FOR 2 DAYS, FOLLOWED BY 1 INJECTION ONCE A DAY FOR 3 DAYS
     Dates: start: 20170912, end: 20170917
  3. HYDROCHLOROTHIAZIDE. [Concomitant]
     Active Substance: HYDROCHLOROTHIAZIDE
  4. VITAMIN D [Concomitant]
     Active Substance: CHOLECALCIFEROL
     Indication: PSORIASIS
     Route: 048
  5. SYNRIBO [Suspect]
     Active Substance: OMACETAXINE MEPESUCCINATE
     Dates: start: 20150302, end: 20150312
  6. ASPIRIN. [Concomitant]
     Active Substance: ASPIRIN
  7. HYDROCHLOROTHIAZIDE. [Concomitant]
     Active Substance: HYDROCHLOROTHIAZIDE
  8. SIMVASTATIN. [Concomitant]
     Active Substance: SIMVASTATIN
  9. AMBIEN [Concomitant]
     Active Substance: ZOLPIDEM TARTRATE
  10. PLAVIX [Concomitant]
     Active Substance: CLOPIDOGREL BISULFATE
  11. KEPPRA [Concomitant]
     Active Substance: LEVETIRACETAM

REACTIONS (3)
  - Injection site swelling [Recovered/Resolved]
  - Influenza like illness [Recovered/Resolved]
  - Malaise [Recovered/Resolved]

NARRATIVE: CASE EVENT DATE: 20170912
